FAERS Safety Report 18517546 (Version 3)
Quarter: 2021Q2

REPORT INFORMATION
  Report Type: Report from Study
  Country: CA (occurrence: CA)
  Receive Date: 20201118
  Receipt Date: 20210616
  Transmission Date: 20210717
  Serious: Yes (Life-Threatening, Other)
  Sender: FDA-Public Use
  Company Number: CA-AMRYT PHARMACEUTICALS DAC-AEGR005014

PATIENT

DRUGS (2)
  1. JUXTAPID [Suspect]
     Active Substance: LOMITAPIDE MESYLATE
     Indication: TYPE IIA HYPERLIPIDAEMIA
     Dosage: 5 MILLIGRAM, UNK
     Route: 048
     Dates: start: 20141107
  2. JUXTAPID [Suspect]
     Active Substance: LOMITAPIDE MESYLATE
     Dosage: 20 MILLIGRAM, QD
     Route: 048

REACTIONS (5)
  - Atrial fibrillation [Unknown]
  - Anaemia [Unknown]
  - Weight decreased [Unknown]
  - Cardiac failure [Unknown]
  - Treatment noncompliance [Unknown]
